FAERS Safety Report 10498933 (Version 2)
Quarter: 2014Q4

REPORT INFORMATION
  Report Type: Spontaneous
  Country: DZ (occurrence: DZ)
  Receive Date: 20141006
  Receipt Date: 20141009
  Transmission Date: 20150528
  Serious: Yes (Other)
  Sender: FDA-Public Use
  Company Number: DZ-ABBVIE-14P-003-1291521-00

PATIENT
  Age: 1 Month
  Sex: Male

DRUGS (2)
  1. NOVOSEVEN [Interacting]
     Active Substance: COAGULATION FACTOR VIIA RECOMBINANT HUMAN
     Indication: FACTOR VII DEFICIENCY
     Dosage: DECREASING DOSES
     Route: 065
  2. VALPROATE SODIUM. [Suspect]
     Active Substance: VALPROATE SODIUM
     Indication: SEIZURE
     Route: 065

REACTIONS (2)
  - Drug interaction [Recovered/Resolved]
  - Peritoneal haemorrhage [Recovered/Resolved]
